FAERS Safety Report 7694326-6 (Version None)
Quarter: 2011Q3

REPORT INFORMATION
  Report Type: 
  Country: None (occurrence: None)
  Receive Date: 20110819
  Receipt Date: 20110816
  Transmission Date: 20111222
  Serious: Yes (Hospitalization)
  Sender: FDA-Public Use
  Company Number: US-SANOFI-AVENTIS-2011SA036849

PATIENT
  Age: 75 Year
  Sex: Male
  Weight: 72.73 kg

DRUGS (8)
  1. PRILOSEC [Concomitant]
  2. SIMVASTATIN [Concomitant]
  3. METFORMIN HCL [Concomitant]
  4. GLIPIZIDE [Concomitant]
     Indication: TYPE 2 DIABETES MELLITUS
     Dosage: 10 MG IN THE MORNING AND 5 MG IN THE EVENING
  5. PLAVIX [Suspect]
     Indication: STENT PLACEMENT
     Route: 048
     Dates: start: 20040331
  6. PROTONIX [Concomitant]
  7. PLAVIX [Suspect]
     Route: 048
     Dates: start: 20020101
  8. PRILOSEC [Concomitant]
     Dates: start: 20110101

REACTIONS (7)
  - DIARRHOEA [None]
  - WEIGHT DECREASED [None]
  - VASCULAR OCCLUSION [None]
  - ABDOMINAL PAIN UPPER [None]
  - BLOOD GLUCOSE INCREASED [None]
  - CONSTIPATION [None]
  - VOMITING [None]
